FAERS Safety Report 25019103 (Version 1)
Quarter: 2025Q1

REPORT INFORMATION
  Report Type: Report from Study
  Country: US (occurrence: US)
  Receive Date: 20250227
  Receipt Date: 20250227
  Transmission Date: 20250409
  Serious: No
  Sender: ACADIA PHARMACEUTICALS
  Company Number: US-ACADIA PHARMACEUTICALS INC.-ACA-2025-PIM-001568

PATIENT
  Sex: Male

DRUGS (10)
  1. NUPLAZID [Suspect]
     Active Substance: PIMAVANSERIN TARTRATE
     Indication: Parkinson^s disease
     Dosage: 34 MILLIGRAM, QD
     Route: 048
     Dates: start: 20240206
  2. RASAGILINE [Concomitant]
     Active Substance: RASAGILINE
  3. QUETIAPINE [Concomitant]
     Active Substance: QUETIAPINE
  4. CLONAZEPAM [Concomitant]
     Active Substance: CLONAZEPAM
  5. DONEPEZIL [Concomitant]
     Active Substance: DONEPEZIL
  6. LEXAPRO [Concomitant]
     Active Substance: ESCITALOPRAM OXALATE
  7. MELATONIN [Concomitant]
     Active Substance: MELATONIN
  8. BUPROPION [Concomitant]
     Active Substance: BUPROPION
  9. IPRATROPIUM BROMIDE [Concomitant]
     Active Substance: IPRATROPIUM BROMIDE
  10. LOSARTAN [Concomitant]
     Active Substance: LOSARTAN

REACTIONS (2)
  - Swelling [Unknown]
  - Constipation [Unknown]
